FAERS Safety Report 13671593 (Version 1)
Quarter: 2017Q2

REPORT INFORMATION
  Report Type: Spontaneous
  Country: US (occurrence: US)
  Receive Date: 20170620
  Receipt Date: 20170620
  Transmission Date: 20170830
  Serious: No
  Sender: FDA-Public Use
  Company Number: US-ROCHE-1095133

PATIENT
  Sex: Male

DRUGS (4)
  1. OXALIPLATIN. [Concomitant]
     Active Substance: OXALIPLATIN
  2. FOLINIC ACID [Concomitant]
     Active Substance: LEUCOVORIN
  3. FLUOROURACIL. [Concomitant]
     Active Substance: FLUOROURACIL
  4. XELODA [Suspect]
     Active Substance: CAPECITABINE
     Indication: PRODUCT USED FOR UNKNOWN INDICATION
     Route: 065

REACTIONS (4)
  - Skin exfoliation [Recovering/Resolving]
  - Rash [Recovering/Resolving]
  - Ocular hyperaemia [Recovering/Resolving]
  - Erythema [Recovering/Resolving]
